FAERS Safety Report 6165217-7 (Version None)
Quarter: 2009Q2

REPORT INFORMATION
  Report Type: 
  Country: None (occurrence: None)
  Receive Date: 20090423
  Receipt Date: 20090413
  Transmission Date: 20091009
  Serious: Yes (Death, Congenital Anomaly, Other)
  Sender: FDA-Public Use
  Company Number: US-PFIZER INC-2008049876

PATIENT
  Sex: Female

DRUGS (11)
  1. ZOLOFT [Suspect]
     Indication: DEPRESSION
     Route: 064
  2. ZOLOFT [Suspect]
     Indication: ANXIETY
  3. LEXAPRO [Concomitant]
     Dosage: 10 MG, 1X/DAY
     Dates: start: 20030629
  4. VITAMIN TAB [Concomitant]
     Dosage: UNK
     Dates: start: 20030629
  5. REGLAN [Concomitant]
     Dosage: 10 MG, UNK
     Dates: start: 20030811
  6. ZYRTEC [Concomitant]
     Dosage: 10 MG, UNK
     Route: 048
     Dates: start: 20030902
  7. BENADRYL [Concomitant]
  8. TYLENOL [Concomitant]
     Route: 048
  9. ROBITUSSIN ^ROBINS^ [Concomitant]
  10. ZITHROMAX [Concomitant]
     Dosage: UNK
     Dates: start: 20031104
  11. KAOPECTATE [Concomitant]

REACTIONS (11)
  - AORTIC VALVE STENOSIS [None]
  - ATRIOVENTRICULAR SEPTAL DEFECT [None]
  - DRUG EXPOSURE DURING PREGNANCY [None]
  - HEPATIC CONGESTION [None]
  - LUNG DISORDER [None]
  - MITRAL VALVE HYPOPLASIA [None]
  - MULTIPLE CONGENITAL ABNORMALITIES [None]
  - PATENT DUCTUS ARTERIOSUS [None]
  - PERSISTENT FOETAL CIRCULATION [None]
  - RENAL TUBULAR NECROSIS [None]
  - RIGHT VENTRICULAR HYPERTROPHY [None]
